FAERS Safety Report 9493692 (Version 1)
Quarter: 2013Q3

REPORT INFORMATION
  Report Type: Spontaneous
  Country: FR (occurrence: FR)
  Receive Date: 20130902
  Receipt Date: 20130902
  Transmission Date: 20140515
  Serious: Yes (Life-Threatening, Other)
  Sender: FDA-Public Use
  Company Number: FR-ASTRAZENECA-2013SE66553

PATIENT
  Age: 3063 Week
  Sex: Female

DRUGS (11)
  1. INEXIUM [Suspect]
     Route: 048
     Dates: start: 20130206, end: 20130220
  2. BACTRIM [Suspect]
     Indication: LUNG DISORDER
     Route: 048
     Dates: start: 20130206, end: 20130216
  3. RITUXIMAB [Suspect]
     Indication: LYMPHOMA
     Dosage: FIFTH COURSE
     Route: 042
     Dates: start: 20130104, end: 20130104
  4. CYCLOPHOSPHAMIDE [Suspect]
     Indication: LYMPHOMA
     Dosage: FIFTH COURSE
     Route: 042
     Dates: start: 20130104, end: 20130104
  5. VINCRISTINE [Suspect]
     Indication: LYMPHOMA
     Dosage: FIFTH COURSE
     Route: 042
     Dates: start: 20130104, end: 20130104
  6. ADRIAMYCIN [Suspect]
     Indication: LYMPHOMA
     Dosage: FIFTH COURSE
     Route: 042
     Dates: start: 20130104, end: 20130104
  7. LEDERFOLINE [Concomitant]
     Dates: start: 20130206
  8. PREDNISONE [Concomitant]
     Dates: start: 20130213
  9. PARACETAMOL [Concomitant]
     Dates: start: 20130206
  10. ACUPAN [Concomitant]
     Dates: start: 20130206
  11. GAVISCON [Concomitant]
     Dates: start: 20130212

REACTIONS (4)
  - Neutropenia [Unknown]
  - Renal failure [Unknown]
  - Pyrexia [Unknown]
  - Abdominal pain upper [Unknown]
